FAERS Safety Report 24454396 (Version 2)
Quarter: 2024Q4

REPORT INFORMATION
  Report Type: Spontaneous
  Country: GB (occurrence: GB)
  Receive Date: 20241017
  Receipt Date: 20241018
  Transmission Date: 20250115
  Serious: No
  Sender: ROCHE
  Company Number: GB-ROCHE-3464842

PATIENT
  Sex: Male

DRUGS (7)
  1. RITUXIMAB [Suspect]
     Active Substance: RITUXIMAB
     Indication: Nephrotic syndrome
     Route: 065
  2. MYCOPHENOLATE MOFETIL [Suspect]
     Active Substance: MYCOPHENOLATE MOFETIL
     Indication: Nephrotic syndrome
     Route: 065
  3. PREDNISOLONE [Suspect]
     Active Substance: PREDNISOLONE
     Indication: Nephrotic syndrome
     Route: 048
  4. METHYLPREDNISOLONE [Suspect]
     Active Substance: METHYLPREDNISOLONE
     Indication: Nephrotic syndrome
     Route: 042
  5. TACROLIMUS [Suspect]
     Active Substance: TACROLIMUS
     Indication: Nephrotic syndrome
     Route: 065
  6. OFATUMUMAB [Concomitant]
     Active Substance: OFATUMUMAB
     Dosage: SINGLE TEST DOSE
     Route: 065
     Dates: start: 201807
  7. OFATUMUMAB [Concomitant]
     Active Substance: OFATUMUMAB
     Dosage: FULL DOSE 2 WEEKS LATER
     Route: 065

REACTIONS (3)
  - Treatment failure [Unknown]
  - Hypogammaglobulinaemia [Unknown]
  - Meningitis aseptic [Unknown]
